FAERS Safety Report 4437131-6 (Version None)
Quarter: 2004Q3

REPORT INFORMATION
  Report Type: 
  Country: None (occurrence: None)
  Receive Date: 20040827
  Receipt Date: 20040816
  Transmission Date: 20050211
  Serious: Yes (Other)
  Sender: FDA-Public Use
  Company Number: 2004229197US

PATIENT
  Age: 38 Week
  Sex: Female
  Weight: 90.7 kg

DRUGS (1)
  1. DEPO-PROVERA [Suspect]
     Indication: CONTRACEPTION
     Dosage: 150 M G, 1ST INJECTION, INTRAMUSCULAR
     Route: 030
     Dates: start: 20010101, end: 20010101

REACTIONS (5)
  - ABORTION SPONTANEOUS [None]
  - DRUG EXPOSURE DURING PREGNANCY [None]
  - PREGNANCY WITH INJECTABLE CONTRACEPTIVE [None]
  - UNINTENDED PREGNANCY [None]
  - WEIGHT INCREASED [None]
